FAERS Safety Report 5775058-8 (Version None)
Quarter: 2008Q2

REPORT INFORMATION
  Report Type: 
  Country: None (occurrence: None)
  Receive Date: 20080612
  Receipt Date: 20080530
  Transmission Date: 20081010
  Serious: Yes (Hospitalization)
  Sender: FDA-Public Use
  Company Number: 2008AL006294

PATIENT
  Age: 77 Year
  Sex: Female

DRUGS (4)
  1. DIGOXIN [Suspect]
     Indication: ARRHYTHMIA
     Dosage: 0.125MG   DAILY PO
     Route: 048
     Dates: start: 20030101
  2. DIGOXIN [Suspect]
     Indication: ARRHYTHMIA
     Dosage: 0.25MG  DAILY PO
     Route: 048
     Dates: end: 20080430
  3. INSULIN [Concomitant]
  4. CARDIAC THERAPY [Concomitant]

REACTIONS (3)
  - ANXIETY [None]
  - CARDIAC FLUTTER [None]
  - CEREBROVASCULAR ACCIDENT [None]
